FAERS Safety Report 10603272 (Version 1)
Quarter: 2014Q4

REPORT INFORMATION
  Report Type: Spontaneous
  Country: FR (occurrence: FR)
  Receive Date: 20141124
  Receipt Date: 20141124
  Transmission Date: 20150529
  Serious: Yes (Hospitalization, Other)
  Sender: FDA-Public Use
  Company Number: FR-TEVA-523512ISR

PATIENT
  Sex: Female
  Weight: 86 kg

DRUGS (5)
  1. TAHOR [Concomitant]
     Active Substance: ATORVASTATIN CALCIUM
     Indication: HYPERCHOLESTEROLAEMIA
     Dosage: LONG-TERM TREATMENT
  2. MONOTILDIEM [Concomitant]
     Active Substance: DILTIAZEM
     Indication: HYPERTENSION
     Dosage: LONG-TERM TREATMENT
  3. COPAXONE [Suspect]
     Active Substance: GLATIRAMER ACETATE
     Indication: MULTIPLE SCLEROSIS
     Dosage: 20 MILLIGRAM DAILY; 20MG, WITH THE AUTOJECT
     Route: 058
     Dates: start: 200809
  4. LEVOTHYROX [Concomitant]
     Active Substance: LEVOTHYROXINE
     Indication: SURGERY
     Dosage: 75 MICROGRAM DAILY;
  5. KARDEGIC [Concomitant]
     Active Substance: ASPIRIN LYSINE
     Indication: ISCHAEMIC HEART DISEASE PROPHYLAXIS
     Dosage: LONG-TERM TREATMENT

REACTIONS (6)
  - Injection site pain [Recovered/Resolved]
  - Multiple sclerosis relapse [Recovered/Resolved]
  - Vision blurred [Recovered/Resolved]
  - Injection site mass [Recovered/Resolved]
  - Pruritus [Recovered/Resolved]
  - Exophthalmos [Not Recovered/Not Resolved]

NARRATIVE: CASE EVENT DATE: 2010
